FAERS Safety Report 5401896-7 (Version None)
Quarter: 2007Q3

REPORT INFORMATION
  Report Type: 
  Country: None (occurrence: None)
  Receive Date: 20070731
  Receipt Date: 20070724
  Transmission Date: 20080115
  Serious: No
  Sender: FDA-Public Use
  Company Number: BR-SHR-BR-2006-038578

PATIENT
  Age: 56 Year
  Sex: Male

DRUGS (2)
  1. BETASERON [Suspect]
     Dosage: UNK MIU, UNK
     Route: 058
     Dates: start: 20070601
  2. BETASERON [Suspect]
     Dosage: UNK MIU, UNK
     Route: 058
     Dates: start: 20050101, end: 20060701

REACTIONS (1)
  - MUSCULAR WEAKNESS [None]
